FAERS Safety Report 4573447-0 (Version None)
Quarter: 2005Q1

REPORT INFORMATION
  Report Type: 
  Country: None (occurrence: None)
  Receive Date: 20050208
  Receipt Date: 20040817
  Transmission Date: 20050727
  Serious: No
  Sender: FDA-Public Use
  Company Number: US-GLAXOSMITHKLINE-A0522569A

PATIENT
  Sex: Male

DRUGS (3)
  1. PAXIL [Suspect]
     Indication: DRUG USE FOR UNKNOWN INDICATION
     Route: 048
  2. ALCOHOL [Concomitant]
     Route: 048
  3. MARIJUANA [Concomitant]
     Route: 055

REACTIONS (2)
  - LIBIDO DECREASED [None]
  - SLEEP DISORDER [None]
